FAERS Safety Report 5834225-5 (Version None)
Quarter: 2008Q3

REPORT INFORMATION
  Report Type: 
  Country: None (occurrence: None)
  Receive Date: 20080805
  Receipt Date: 20080729
  Transmission Date: 20090109
  Serious: Yes (Hospitalization)
  Sender: FDA-Public Use
  Company Number: US-KINGPHARMUSA00001-K200800877

PATIENT

DRUGS (1)
  1. ALTACE [Suspect]

REACTIONS (1)
  - ASTHMA [None]
